FAERS Safety Report 13750679 (Version 1)
Quarter: 2017Q3

REPORT INFORMATION
  Report Type: Spontaneous
  Country: ES (occurrence: ES)
  Receive Date: 20170713
  Receipt Date: 20170713
  Transmission Date: 20171127
  Serious: Yes (Other)
  Sender: FDA-Public Use
  Company Number: ES-SA-2017SA124899

PATIENT
  Sex: Female
  Weight: 60 kg

DRUGS (1)
  1. LANTUS [Suspect]
     Active Substance: INSULIN GLARGINE
     Indication: DIABETES MELLITUS
     Route: 058
     Dates: end: 20170630

REACTIONS (3)
  - Blindness [Recovering/Resolving]
  - Diplopia [Recovering/Resolving]
  - Cerebrovascular accident [Recovered/Resolved]
